FAERS Safety Report 7490226-5 (Version None)
Quarter: 2011Q2

REPORT INFORMATION
  Report Type: 
  Country: None (occurrence: None)
  Receive Date: 20110519
  Receipt Date: 20110505
  Transmission Date: 20111010
  Serious: No
  Sender: FDA-Public Use
  Company Number: US-TYCO HEALTHCARE/MALLINCKRODT-T201100927

PATIENT
  Sex: Male
  Weight: 97.506 kg

DRUGS (8)
  1. METOPROLOL TARTRATE [Concomitant]
  2. ZOCOR [Concomitant]
  3. LASIX [Concomitant]
  4. FENTANYL-100 [Suspect]
     Indication: BACK PAIN
     Dosage: ONE PATCH EVERY THREE DAYS
     Route: 062
     Dates: start: 20110401, end: 20110501
  5. INSULIN [Concomitant]
  6. GABAPENTIN [Concomitant]
  7. OXYCODONE HCL [Concomitant]
     Dosage: 5 MG, QID
     Route: 048
  8. ISOSORBIDE DINITRATE [Concomitant]

REACTIONS (4)
  - SOMNOLENCE [None]
  - DECREASED APPETITE [None]
  - ABNORMAL BEHAVIOUR [None]
  - DRUG INEFFECTIVE [None]
